FAERS Safety Report 7629652-X (Version None)
Quarter: 2011Q3

REPORT INFORMATION
  Report Type: 
  Country: None (occurrence: None)
  Receive Date: 20110722
  Receipt Date: 20110715
  Transmission Date: 20111222
  Serious: Yes (Life-Threatening, Hospitalization)
  Sender: FDA-Public Use
  Company Number: US-JNJFOC-20110706928

PATIENT
  Age: 54 Year
  Sex: Female

DRUGS (7)
  1. SSRI [Concomitant]
     Route: 065
  2. PHENCYCLIDINE [Suspect]
     Indication: PRODUCT USED FOR UNKNOWN INDICATION
     Dates: start: 20110128
  3. ULTRAM [Suspect]
     Indication: PRODUCT USED FOR UNKNOWN INDICATION
     Route: 065
     Dates: start: 20110128
  4. HYDROCODONE BITARTRATE AND ACETAMINOPHEN [Concomitant]
     Route: 065
  5. LOPRESSOR [Concomitant]
     Route: 065
  6. PROTON PUMP INHIBITOR [Concomitant]
     Route: 065
  7. ASPIRIN [Concomitant]
     Route: 065

REACTIONS (11)
  - BLOOD PH DECREASED [None]
  - ANXIETY [None]
  - PYREXIA [None]
  - COMA [None]
  - MULTIPLE DRUG OVERDOSE [None]
  - TACHYCARDIA [None]
  - RESPIRATORY DEPRESSION [None]
  - HYPOKALAEMIA [None]
  - AGITATION [None]
  - CONVULSION [None]
  - BLOOD PRESSURE INCREASED [None]
